FAERS Safety Report 17966427 (Version 1)
Quarter: 2020Q2

REPORT INFORMATION
  Report Type: Spontaneous
  Country: US (occurrence: US)
  Receive Date: 20200630
  Receipt Date: 20200630
  Transmission Date: 20200714
  Serious: Yes (Hospitalization, Disabling)
  Sender: FDA-Public Use
  Company Number: US-009507513-2006USA009641

PATIENT
  Age: 76 Year
  Sex: Female

DRUGS (2)
  1. PRINIVIL [Suspect]
     Active Substance: LISINOPRIL
     Indication: HYPERTENSION
     Dosage: 10 MG/ ONCE DAILY
     Route: 048
     Dates: start: 202001, end: 2020
  2. PRINIVIL [Suspect]
     Active Substance: LISINOPRIL
     Dosage: 20 MG/ ONCE DAILY
     Route: 048
     Dates: start: 2020

REACTIONS (12)
  - Wheelchair user [Recovering/Resolving]
  - Dyspnoea [Recovering/Resolving]
  - Thyroid disorder [Recovering/Resolving]
  - Walking aid user [Recovering/Resolving]
  - Anxiety [Recovering/Resolving]
  - Depression [Recovering/Resolving]
  - Emotional distress [Recovering/Resolving]
  - Alopecia [Recovering/Resolving]
  - Malaise [Recovering/Resolving]
  - Influenza [Recovering/Resolving]
  - Drug ineffective [Unknown]
  - Morning sickness [Recovering/Resolving]

NARRATIVE: CASE EVENT DATE: 2020
